FAERS Safety Report 15431076 (Version 1)
Quarter: 2018Q3

REPORT INFORMATION
  Report Type: Spontaneous
  Country: US (occurrence: US)
  Receive Date: 20180926
  Receipt Date: 20180926
  Transmission Date: 20181010
  Serious: No
  Sender: FDA-Public Use
  Company Number: US-INDIVIOR LIMITED-INDV-112436-2018

PATIENT
  Sex: Male

DRUGS (1)
  1. SUBOXONE [Suspect]
     Active Substance: BUPRENORPHINE HYDROCHLORIDE\NALOXONE HYDROCHLORIDE
     Indication: DRUG DEPENDENCE
     Dosage: 8MG, ONCE DAILY
     Route: 060
     Dates: start: 201806

REACTIONS (3)
  - Intentional underdose [Unknown]
  - Drug abuse [Unknown]
  - Adverse event [Unknown]

NARRATIVE: CASE EVENT DATE: 2018
